FAERS Safety Report 7256518-X (Version None)
Quarter: 2011Q1

REPORT INFORMATION
  Report Type: 
  Country: None (occurrence: None)
  Receive Date: 20110129
  Receipt Date: 20100804
  Transmission Date: 20110831
  Serious: No
  Sender: FDA-Public Use
  Company Number: US-ABBOTT-10P-163-0662232-00

PATIENT
  Age: 22 Year
  Sex: Female

DRUGS (3)
  1. IMURAN [Concomitant]
     Dates: start: 20100701
  2. HUMIRA [Suspect]
     Indication: CROHN'S DISEASE
     Route: 058
     Dates: start: 20091101
  3. IMURAN [Concomitant]
     Indication: CROHN'S DISEASE
     Dates: end: 20100701

REACTIONS (4)
  - CROHN'S DISEASE [None]
  - ABDOMINAL PAIN UPPER [None]
  - INFECTION [None]
  - PYREXIA [None]
